FAERS Safety Report 6777828-6 (Version None)
Quarter: 2010Q2

REPORT INFORMATION
  Report Type: 
  Country: None (occurrence: None)
  Receive Date: 20100618
  Receipt Date: 20100603
  Transmission Date: 20101027
  Serious: Yes (Hospitalization)
  Sender: FDA-Public Use
  Company Number: BE-MYLANLABS-2010S1009793

PATIENT
  Age: 52 Year
  Sex: Male
  Weight: 70 kg

DRUGS (1)
  1. VERAPAMIL [Suspect]
     Indication: HYPERTROPHIC CARDIOMYOPATHY
     Dosage: SINGLE DOSE IN THE MORNING
     Route: 065

REACTIONS (1)
  - CIRCULATORY COLLAPSE [None]
